FAERS Safety Report 7938275-4 (Version None)
Quarter: 2011Q4

REPORT INFORMATION
  Report Type: 
  Country: None (occurrence: None)
  Receive Date: 20111123
  Receipt Date: 20111114
  Transmission Date: 20120403
  Serious: Yes (Other)
  Sender: FDA-Public Use
  Company Number: US-ASTRAZENECA-2011SE69064

PATIENT
  Age: 72 Year
  Sex: Male

DRUGS (4)
  1. FLACENIDE [Concomitant]
  2. CRESTOR [Suspect]
     Indication: BLOOD CHOLESTEROL ABNORMAL
     Route: 048
     Dates: start: 20110101
  3. DIGITALIS TAB [Concomitant]
  4. ANTICOAGULATION THERAPY [Concomitant]

REACTIONS (1)
  - ATRIAL FIBRILLATION [None]
